FAERS Safety Report 23202536 (Version 1)
Quarter: 2023Q4

REPORT INFORMATION
  Report Type: Spontaneous
  Country: US (occurrence: None)
  Receive Date: 20231118
  Receipt Date: 20231118
  Transmission Date: 20240110
  Serious: Yes (Hospitalization)
  Sender: FDA-Public Use
  Company Number: None

PATIENT
  Age: 24 Year
  Sex: Male
  Weight: 68.5 kg

DRUGS (4)
  1. ETOPOSIDE [Suspect]
     Active Substance: ETOPOSIDE
     Dates: end: 20231013
  2. PREDNISONE [Suspect]
     Active Substance: PREDNISONE
     Dates: end: 20231011
  3. RITUXIMAB [Suspect]
     Active Substance: RITUXIMAB
     Dates: end: 20231011
  4. VINCRISTINE SULFATE [Suspect]
     Active Substance: VINCRISTINE SULFATE
     Dates: end: 20231013

REACTIONS (7)
  - Nausea [None]
  - Vomiting [None]
  - Abdominal pain upper [None]
  - Haematemesis [None]
  - Therapy interrupted [None]
  - Abdominal pain [None]
  - Diarrhoea [None]

NARRATIVE: CASE EVENT DATE: 20231014
